FAERS Safety Report 18321623 (Version 1)
Quarter: 2020Q3

REPORT INFORMATION
  Report Type: Spontaneous
  Country: US (occurrence: US)
  Receive Date: 20200928
  Receipt Date: 20200928
  Transmission Date: 20201103
  Serious: Yes (Hospitalization, Other)
  Sender: FDA-Public Use
  Company Number: US-GLAXOSMITHKLINE-US2020GSK186135

PATIENT
  Age: 39 Year
  Sex: Female

DRUGS (4)
  1. CARBAMAZEPINE. [Suspect]
     Active Substance: CARBAMAZEPINE
     Indication: EPILEPSY
     Dosage: UNK
  2. AMOXICILLIN. [Suspect]
     Active Substance: AMOXICILLIN
     Indication: LYMPHADENOPATHY
     Dosage: UNK
  3. AMOXICILLIN. [Suspect]
     Active Substance: AMOXICILLIN
     Indication: PHARYNGITIS
  4. LAMOTRIGINE. [Suspect]
     Active Substance: LAMOTRIGINE
     Indication: EPILEPSY
     Dosage: UNK

REACTIONS (25)
  - Rash maculo-papular [Unknown]
  - Hyperglycaemia [Unknown]
  - Pneumonia bacterial [Unknown]
  - Acute respiratory distress syndrome [Unknown]
  - Blood glucose increased [Unknown]
  - Rash erythematous [Unknown]
  - Eosinophilia [Unknown]
  - Hypovolaemic shock [Unknown]
  - Acute generalised exanthematous pustulosis [Unknown]
  - Pyrexia [Unknown]
  - Sepsis [Unknown]
  - Non-alcoholic steatohepatitis [Unknown]
  - Drug reaction with eosinophilia and systemic symptoms [Recovering/Resolving]
  - Hepatic failure [Unknown]
  - Condition aggravated [Unknown]
  - Fulminant type 1 diabetes mellitus [Unknown]
  - Neutrophil count increased [Unknown]
  - Splenic lesion [Unknown]
  - Diabetic ketoacidosis [Unknown]
  - Lymphadenopathy [Unknown]
  - Rash morbilliform [Unknown]
  - Glycosylated haemoglobin increased [Unknown]
  - Rash pruritic [Unknown]
  - Face oedema [Unknown]
  - Transaminases increased [Unknown]
